FAERS Safety Report 5533368-3 (Version None)
Quarter: 2007Q4

REPORT INFORMATION
  Report Type: 
  Country: None (occurrence: None)
  Receive Date: 20071204
  Receipt Date: 20071126
  Transmission Date: 20080405
  Serious: Yes (Other)
  Sender: FDA-Public Use
  Company Number: US-ELI_LILLY_AND_COMPANY-US200711005715

PATIENT
  Sex: Female

DRUGS (4)
  1. STRATTERA [Suspect]
     Indication: ATTENTION DEFICIT/HYPERACTIVITY DISORDER
     Dosage: 25 MG, DAILY (1/D)
     Dates: start: 20060101, end: 20071125
  2. PREVACID [Concomitant]
  3. RANITIDINE HCL [Concomitant]
  4. ATIVAN [Concomitant]
     Dosage: 3 MG, DAILY (1/D)

REACTIONS (5)
  - CONVULSION [None]
  - DYSPNOEA [None]
  - FOAMING AT MOUTH [None]
  - HEADACHE [None]
  - SOMNOLENCE [None]
